FAERS Safety Report 18152718 (Version 4)
Quarter: 2020Q3

REPORT INFORMATION
  Report Type: Spontaneous
  Country: DE (occurrence: DE)
  Receive Date: 20200814
  Receipt Date: 20200928
  Transmission Date: 20201103
  Serious: Yes (Other)
  Sender: FDA-Public Use
  Company Number: DE-BRISTOL-MYERS SQUIBB COMPANY-BMS-2020-064281

PATIENT
  Age: 67 Year
  Sex: Female
  Weight: 110 kg

DRUGS (2)
  1. ELIQUIS [Suspect]
     Active Substance: APIXABAN
     Indication: CEREBROVASCULAR ACCIDENT PROPHYLAXIS
     Dosage: 5 MILLIGRAM, BID
     Route: 065
  2. TAMBOCOR [Concomitant]
     Active Substance: FLECAINIDE ACETATE
     Indication: PRODUCT USED FOR UNKNOWN INDICATION
     Dosage: UNK
     Route: 065

REACTIONS (14)
  - Cystitis noninfective [Unknown]
  - Spinal pain [Not Recovered/Not Resolved]
  - Vitamin D decreased [Unknown]
  - Gastroenteritis [Unknown]
  - Fatty acid deficiency [Unknown]
  - Vitamin K decreased [Unknown]
  - Vocal cord inflammation [Unknown]
  - Keratitis [Unknown]
  - Impaired healing [Unknown]
  - Arthralgia [Not Recovered/Not Resolved]
  - Vaginal infection [Unknown]
  - Renal disorder [Unknown]
  - Dysbiosis [Unknown]
  - Weight decreased [Unknown]
